FAERS Safety Report 5914517-1 (Version None)
Quarter: 2008Q4

REPORT INFORMATION
  Report Type: 
  Country: None (occurrence: None)
  Receive Date: 20081008
  Receipt Date: 20080718
  Transmission Date: 20090506
  Serious: Yes (Hospitalization, Other)
  Sender: FDA-Public Use
  Company Number: 2008-02700

PATIENT
  Sex: Male

DRUGS (1)
  1. VELCADE [Suspect]
     Indication: DRUG USE FOR UNKNOWN INDICATION
     Dosage: INTRAVENOUS
     Route: 042

REACTIONS (1)
  - NECROTISING FASCIITIS [None]
